FAERS Safety Report 4591506-3 (Version None)
Quarter: 2005Q1

REPORT INFORMATION
  Report Type: 
  Country: None (occurrence: None)
  Receive Date: 20050223
  Receipt Date: 20050223
  Transmission Date: 20050727
  Serious: Yes (Hospitalization)
  Sender: FDA-Public Use
  Company Number: None

PATIENT
  Sex: Male

DRUGS (9)
  1. COLCHICINE    0.6 MG [Suspect]
     Indication: GOUT
     Dosage: 0.6 MG   DAILY   ORAL
     Route: 048
  2. SIMVASTATIN [Suspect]
     Indication: HYPERLIPIDAEMIA
     Dosage: 40 MG   HS   ORAL
     Route: 048
  3. DIGOXIN [Concomitant]
  4. FUROSEMIDE [Concomitant]
  5. GABAPENTIN [Concomitant]
  6. LORATADINE [Concomitant]
  7. METOPROLOL [Concomitant]
  8. ENSURE [Concomitant]
  9. PROPOXYPHENE/APAP [Concomitant]

REACTIONS (5)
  - ARTHRALGIA [None]
  - ASTHENIA [None]
  - BLOOD CREATINE PHOSPHOKINASE INCREASED [None]
  - HYPOXIA [None]
  - PAIN [None]
